FAERS Safety Report 6038109-1 (Version None)
Quarter: 2009Q1

REPORT INFORMATION
  Report Type: 
  Country: None (occurrence: None)
  Receive Date: 20090115
  Receipt Date: 20081202
  Transmission Date: 20090719
  Serious: No
  Sender: FDA-Public Use
  Company Number: US-BAYER-200910912GPV

PATIENT
  Age: 80 Year
  Sex: Female
  Weight: 54 kg

DRUGS (6)
  1. SULAR [Suspect]
     Indication: HYPERTENSION
     Route: 048
     Dates: start: 20071101, end: 20081101
  2. SULAR [Suspect]
     Route: 048
     Dates: start: 20081201, end: 20081201
  3. SULAR [Suspect]
     Indication: DRUG USE FOR UNKNOWN INDICATION
     Route: 065
     Dates: start: 20081101, end: 20080101
  4. ATENOLOL [Concomitant]
     Indication: HYPERTENSION
     Route: 048
  5. METHYLDOPA [Concomitant]
     Indication: HYPERTENSION
     Route: 048
  6. LIPITOR [Concomitant]
     Indication: BLOOD CHOLESTEROL INCREASED
     Route: 065

REACTIONS (2)
  - HEADACHE [None]
  - PRESYNCOPE [None]
